FAERS Safety Report 7267549-8 (Version None)
Quarter: 2011Q1

REPORT INFORMATION
  Report Type: 
  Country: None (occurrence: None)
  Receive Date: 20110121
  Receipt Date: 20110110
  Transmission Date: 20110831
  Serious: Yes (Hospitalization, Other)
  Sender: FDA-Public Use
  Company Number: USA/USA/11/0017177

PATIENT
  Age: 18 Month
  Sex: Male

DRUGS (3)
  1. OXCARBAZEPINE [Concomitant]
  2. DIVALPROEX SODIUM [Suspect]
     Indication: CONVULSION
  3. PHENOBARBITAL (PHENOBARBITAL) [Concomitant]

REACTIONS (6)
  - HEPATIC FIBROSIS [None]
  - INTERNATIONAL NORMALISED RATIO INCREASED [None]
  - ANTICONVULSANT DRUG LEVEL INCREASED [None]
  - ACUTE HEPATIC FAILURE [None]
  - PANCYTOPENIA [None]
  - SOMNOLENCE [None]
